FAERS Safety Report 4354585-4 (Version None)
Quarter: 2004Q2

REPORT INFORMATION
  Report Type: 
  Country: None (occurrence: None)
  Receive Date: 20040506
  Receipt Date: 20040506
  Transmission Date: 20050107
  Serious: Yes (Life-Threatening)
  Sender: FDA-Public Use
  Company Number: None

PATIENT
  Age: 51 Year
  Sex: Male
  Weight: 79.3795 kg

DRUGS (2)
  1. DURAGESIC [Suspect]
     Indication: NERVE INJURY
     Dosage: 1 PATCH
     Route: 023
     Dates: start: 20031201, end: 20040531
  2. DURAGESIC [Suspect]
     Indication: OSTEOARTHRITIS
     Dosage: 1 PATCH
     Route: 023
     Dates: start: 20031201, end: 20040531

REACTIONS (4)
  - NAUSEA [None]
  - PHARMACEUTICAL PRODUCT COMPLAINT [None]
  - SEDATION [None]
  - SOMNOLENCE [None]
